FAERS Safety Report 7479680-2 (Version None)
Quarter: 2011Q2

REPORT INFORMATION
  Report Type: 
  Country: None (occurrence: None)
  Receive Date: 20110513
  Receipt Date: 20110328
  Transmission Date: 20111010
  Serious: Yes (Other)
  Sender: FDA-Public Use
  Company Number: US-BAYER-201038967NA

PATIENT
  Age: 25 Year
  Sex: Female
  Weight: 87 kg

DRUGS (5)
  1. YASMIN [Suspect]
     Dosage: UNK
     Dates: start: 20060101, end: 20080101
  2. MULTI-VITAMIN [Concomitant]
  3. ALEVE [Concomitant]
     Dosage: UNK
     Dates: start: 20080101
  4. PAXIL [Concomitant]
     Dosage: 20 MG, QD
  5. YAZ [Suspect]
     Route: 048
     Dates: start: 20080501

REACTIONS (5)
  - HEPATIC NEOPLASM [None]
  - CHOLECYSTITIS CHRONIC [None]
  - GALLBLADDER CHOLESTEROLOSIS [None]
  - GALLBLADDER NON-FUNCTIONING [None]
  - CHOLELITHIASIS [None]
